FAERS Safety Report 4534204-4 (Version None)
Quarter: 2004Q4

REPORT INFORMATION
  Report Type: 
  Country: None (occurrence: None)
  Receive Date: 20041222
  Receipt Date: 19970326
  Transmission Date: 20050328
  Serious: Yes (Life-Threatening, Hospitalization, Other)
  Sender: FDA-Public Use
  Company Number: JP-SOLVAY-PANC003970006

PATIENT
  Age: 24480 Day
  Sex: Male
  Weight: 42.6 kg

DRUGS (19)
  1. ALBUMIN (HUMAN) [Concomitant]
     Indication: HYPOALBUMINAEMIA
     Dosage: DAILY DOSE: 100 ML. FREQUENCY:UNKNOWN
     Route: 042
     Dates: start: 19961205, end: 19961206
  2. ALBUMIN (HUMAN) [Concomitant]
     Dosage: DAILY DOSE: 100 ML. FREQUENCY:UNKNOWN
     Route: 042
     Dates: start: 19961225, end: 19961227
  3. ALBUMIN (HUMAN) [Concomitant]
     Dosage: DAILY DOSE: 100 ML. FREQUENCY:UNKNOWN
     Route: 042
     Dates: start: 19970108, end: 19970110
  4. ALBUMIN (HUMAN) [Concomitant]
     Dosage: DAILY DOSE: 100 ML. FREQUENCY:UNKNOWN
     Route: 042
     Dates: start: 19970116, end: 19970118
  5. ALBUMIN (HUMAN) [Concomitant]
     Dosage: DAILY DOSE: 100 ML. FREQUENCY:UNKNOWN
     Route: 042
     Dates: start: 19970127, end: 19970129
  6. ALBUMIN (HUMAN) [Concomitant]
     Dosage: DAILY DOSE: 100 ML. FREQUENCY:UNKNOWN
     Route: 042
     Dates: start: 19970219, end: 19970221
  7. ALBUMIN (HUMAN) [Concomitant]
     Dosage: DAILY DOSE: 100 MILLILITRE(S)
     Route: 042
     Dates: start: 19970319
  8. CREON [Suspect]
     Indication: PANCREATITIS CHRONIC
     Dosage: DAILY DOSE: 3 G. FREQUENCY:UNKNOWN
     Route: 048
     Dates: start: 19961121, end: 19970320
  9. SOLITA-T NO.3 [Concomitant]
     Indication: OEDEMA
     Dosage: DAILY DOSE: 500 ML. FREQUENCY:UNKNOWN
     Route: 042
     Dates: start: 19970127, end: 19970129
  10. MORIPRON F [Concomitant]
     Indication: OEDEMA
     Dosage: DAILY DOSE: 300 ML. FREQUENCY:UNKNOWN
     Route: 042
     Dates: start: 19970127, end: 19970129
  11. NEOLAMIN MULTI [Concomitant]
     Indication: OEDEMA
     Dosage: DAILY DOSE: UNK. FREQUENCY:UNKNOWN
     Route: 042
     Dates: start: 19970127, end: 19970129
  12. P-N TWIN [Concomitant]
     Indication: OEDEMA
     Dosage: DAILY DOSE: 1000 ML. FREQUENCY:UNKNOWN
     Route: 042
     Dates: start: 19970131, end: 19970319
  13. INTRALIPOS [Concomitant]
     Indication: OEDEMA
     Dosage: DAILY DOSE: 200 ML. FREQUENCY:UNKNOWN
     Route: 042
     Dates: start: 19970129, end: 19970130
  14. INTRALIPOS [Concomitant]
     Dosage: DAILY DOSE: 100 ML. FREQUENCY:UNKNOWN
     Route: 042
     Dates: start: 19970214, end: 19970313
  15. LASIX [Concomitant]
     Indication: OEDEMA
     Dosage: DAILY DOSE: 20 ML. FREQUENCY:UNKNOWN
     Route: 042
     Dates: start: 19970128
  16. LASIX [Concomitant]
     Dosage: DAILY DOSE: 20 ML. FREQUENCY:UNKNOWN
     Route: 042
     Dates: start: 19970213, end: 19970319
  17. ELEMENMIC [Concomitant]
     Indication: OEDEMA
     Dosage: DAILY DOSE: 1 DF. FREQUENCY:UNKNOWN
     Route: 042
     Dates: start: 19970213, end: 19970312
  18. FESIN [Concomitant]
     Indication: OEDEMA
     Dosage: DAILY DOSE: 1 DF. FREQUENCY:UNKNOWN
     Route: 042
     Dates: start: 19970226, end: 19970319
  19. 5% GLUCOSE [Concomitant]
     Indication: PROPHYLAXIS
     Dosage: DAILY DOSE: 20 MILLILITRE(S)
     Route: 042
     Dates: start: 19970317

REACTIONS (8)
  - BLOOD PHOSPHORUS DECREASED [None]
  - BLOOD POTASSIUM DECREASED [None]
  - BRAIN CONTUSION [None]
  - CEREBRAL HAEMORRHAGE [None]
  - FALL [None]
  - HEAD INJURY [None]
  - LOSS OF CONSCIOUSNESS [None]
  - MINERAL METABOLISM DISORDER [None]
